FAERS Safety Report 12091457 (Version 1)
Quarter: 2016Q1

REPORT INFORMATION
  Report Type: Spontaneous
  Country: VE (occurrence: VE)
  Receive Date: 20160218
  Receipt Date: 20160218
  Transmission Date: 20160526
  Serious: Yes (Disabling)
  Sender: FDA-Public Use
  Company Number: PHHY2016VE021770

PATIENT
  Sex: Male

DRUGS (4)
  1. RIVOTRIL [Concomitant]
     Active Substance: CLONAZEPAM
     Indication: SEIZURE
     Dosage: 2 MG, QD
     Route: 065
     Dates: start: 2008
  2. TRILEPTAL [Suspect]
     Active Substance: OXCARBAZEPINE
     Indication: GLIOBLASTOMA MULTIFORME
     Dosage: 600 MG, QD
     Route: 048
     Dates: start: 20081001
  3. TRILEPTAL [Suspect]
     Active Substance: OXCARBAZEPINE
     Dosage: 900 MG, QD
     Route: 048
  4. DEXAMETASONA//DEXAMETHASONE [Concomitant]
     Indication: STEROID THERAPY
     Dosage: 4 MG, QD
     Route: 065
     Dates: start: 2008

REACTIONS (5)
  - Dysgraphia [Unknown]
  - Product use issue [Unknown]
  - Mobility decreased [Unknown]
  - Wrong technique in product usage process [Unknown]
  - Motor dysfunction [Unknown]

NARRATIVE: CASE EVENT DATE: 20081001
